FAERS Safety Report 18349170 (Version 1)
Quarter: 2020Q4

REPORT INFORMATION
  Report Type: Spontaneous
  Country: US (occurrence: US)
  Receive Date: 20201006
  Receipt Date: 20201006
  Transmission Date: 20210114
  Serious: Yes (Hospitalization, Other)
  Sender: FDA-Public Use
  Company Number: None

PATIENT
  Age: 56 Year
  Sex: Male
  Weight: 108 kg

DRUGS (15)
  1. NIACIN 1000 MG [Concomitant]
     Dates: start: 20130917
  2. PIOGLITAZONE 15 MG [Concomitant]
     Active Substance: PIOGLITAZONE HYDROCHLORIDE
     Dates: start: 20200911
  3. CARVEDILOL 25 MG [Concomitant]
     Active Substance: CARVEDILOL
     Dates: start: 20130917
  4. HUMULIN R KWIKPEN U-500 [Concomitant]
     Dates: start: 20160826
  5. OMEGA-3 FATTY ACIDS 2100 MG [Concomitant]
     Dates: start: 20130917
  6. SERTRALINE [Concomitant]
     Active Substance: SERTRALINE HYDROCHLORIDE
     Dates: start: 20200917
  7. HUMULIN R U-500 [Suspect]
     Active Substance: INSULIN HUMAN
  8. ATORVASTATIN 80 MG [Concomitant]
     Active Substance: ATORVASTATIN
     Dates: start: 20140710
  9. ASPIRIN 81 MG [Concomitant]
     Active Substance: ASPIRIN
     Dates: start: 20130917
  10. LEVOTHYROXINE 125 MCG [Concomitant]
     Active Substance: LEVOTHYROXINE SODIUM
     Dates: start: 20130917
  11. VICTOZA [Suspect]
     Active Substance: LIRAGLUTIDE
     Indication: TYPE 2 DIABETES MELLITUS
     Route: 058
     Dates: start: 20200108, end: 20200803
  12. CHOLECALCIFEROL 2000 UNITS [Concomitant]
     Dates: start: 20160129
  13. TAMSULOSIN 0.4 MG [Concomitant]
     Active Substance: TAMSULOSIN
     Dates: start: 20200818
  14. HYDRALAZINE 50 MG [Concomitant]
     Dates: start: 20130917
  15. LORATADINE 10 MG [Concomitant]
     Active Substance: LORATADINE
     Dates: start: 20130905

REACTIONS (5)
  - Cough [None]
  - Pancreatitis acute [None]
  - Blood glucose increased [None]
  - Vomiting [None]
  - Abdominal discomfort [None]

NARRATIVE: CASE EVENT DATE: 20200803
